FAERS Safety Report 7141339-9 (Version None)
Quarter: 2010Q4

REPORT INFORMATION
  Report Type: 
  Country: None (occurrence: None)
  Receive Date: 20101207
  Receipt Date: 20101123
  Transmission Date: 20110411
  Serious: No
  Sender: FDA-Public Use
  Company Number: PHHY2010US75908

PATIENT
  Sex: Male

DRUGS (8)
  1. TASIGNA [Suspect]
     Indication: CHRONIC MYELOID LEUKAEMIA
     Dosage: 150 MG, BID
     Route: 048
     Dates: start: 20101104, end: 20101106
  2. CHERATUSSIN [Concomitant]
     Indication: COUGH
     Dosage: 10 ML, TID
     Route: 048
  3. ACETAMINOPHEN AND HYDROCODONE BITARTRATE [Concomitant]
     Indication: TENDONITIS
     Dosage: 1 DF, BID
  4. LYRICA [Concomitant]
     Indication: NEURALGIA
     Dosage: 1 DF, BID
  5. TEKTURNA [Concomitant]
     Dosage: 1 DF, QD
     Route: 048
  6. CELEBREX [Concomitant]
     Indication: ARTHRALGIA
     Dosage: 1 DF, QD
     Route: 048
  7. TRICOR [Concomitant]
     Dosage: 1 DF, QD
     Route: 048
  8. HYDROXYUREA [Concomitant]
     Dosage: 2 DF, BID
     Route: 048

REACTIONS (1)
  - ELECTROCARDIOGRAM T WAVE INVERSION [None]
